FAERS Safety Report 7701016-X (Version None)
Quarter: 2011Q3

REPORT INFORMATION
  Report Type: 
  Country: None (occurrence: None)
  Receive Date: 20110822
  Receipt Date: 20110811
  Transmission Date: 20111222
  Serious: Yes (Death, Other)
  Sender: FDA-Public Use
  Company Number: IN-BAXTER-2011BH024857

PATIENT
  Age: 42 Year
  Sex: Male

DRUGS (2)
  1. DIANEAL PD-2 W/ DEXTROSE 1.5% [Suspect]
     Indication: PERITONEAL DIALYSIS
     Route: 033
     Dates: start: 20110705, end: 20110810
  2. DIANEAL PD-2 W/ DEXTROSE 1.5% [Suspect]
     Route: 033
     Dates: start: 20110705, end: 20110810

REACTIONS (3)
  - CONSTIPATION [None]
  - DEATH [None]
  - INFECTIOUS PERITONITIS [None]
